FAERS Safety Report 7163123-2 (Version None)
Quarter: 2010Q4

REPORT INFORMATION
  Report Type: 
  Country: None (occurrence: None)
  Receive Date: 20101215
  Receipt Date: 20100301
  Transmission Date: 20110411
  Serious: Yes (Other)
  Sender: FDA-Public Use
  Company Number: US-PFIZER INC-2010027271

PATIENT
  Sex: Female
  Weight: 68.038 kg

DRUGS (4)
  1. LYRICA [Suspect]
     Indication: NEURALGIA
     Dosage: 75 MG, 2X/DAY
     Dates: end: 20100201
  2. ZOLOFT [Concomitant]
     Indication: MIGRAINE
     Dosage: UNK
  3. NEXIUM [Concomitant]
     Dosage: UNK
  4. ALLEGRA [Concomitant]
     Dosage: UNK

REACTIONS (4)
  - ANTINUCLEAR ANTIBODY INCREASED [None]
  - FATIGUE [None]
  - LUPUS-LIKE SYNDROME [None]
  - PAIN [None]
